FAERS Safety Report 19498367 (Version 1)
Quarter: 2021Q3

REPORT INFORMATION
  Report Type: Spontaneous
  Country: US (occurrence: US)
  Receive Date: 20210706
  Receipt Date: 20210706
  Transmission Date: 20211014
  Serious: No
  Sender: FDA-Public Use
  Company Number: US-ALKERMES INC.-ALK-2021-003334

PATIENT
  Age: 33 Year
  Sex: Male
  Weight: 88.89 kg

DRUGS (2)
  1. ARISTADA [Suspect]
     Active Substance: ARIPIPRAZOLE LAUROXIL
     Indication: SCHIZOAFFECTIVE DISORDER BIPOLAR TYPE
     Dosage: 1064 MILLIGRAM, EVERY 28 DAYS
     Route: 030
     Dates: start: 20210604, end: 20210604
  2. ARISTADA [Suspect]
     Active Substance: ARIPIPRAZOLE LAUROXIL
     Dosage: 1064 MILLIGRAM, EVERY 28 DAYS
     Route: 030
     Dates: start: 20210117, end: 20210117

REACTIONS (3)
  - Needle issue [Recovered/Resolved]
  - Off label use [Unknown]
  - Incorrect dose administered [Recovered/Resolved]

NARRATIVE: CASE EVENT DATE: 20210117
